FAERS Safety Report 14039219 (Version 1)
Quarter: 2017Q4

REPORT INFORMATION
  Report Type: Report from Study
  Country: BE (occurrence: BE)
  Receive Date: 20171004
  Receipt Date: 20171004
  Transmission Date: 20180321
  Serious: Yes (Hospitalization, Other)
  Sender: FDA-Public Use
  Company Number: BE-AMGEN-BELNI2017133423

PATIENT
  Sex: Male

DRUGS (1)
  1. BLINATUMOMAB [Suspect]
     Active Substance: BLINATUMOMAB
     Indication: PRECURSOR B-LYMPHOBLASTIC LYMPHOMA REFRACTORY
     Dosage: UNK
     Route: 065
     Dates: start: 20170828

REACTIONS (5)
  - Epilepsy [Unknown]
  - Confusional state [Unknown]
  - C-reactive protein increased [Unknown]
  - Pyrexia [Unknown]
  - Tremor [Unknown]

NARRATIVE: CASE EVENT DATE: 201708
